FAERS Safety Report 9706901 (Version 1)
Quarter: 2013Q4

REPORT INFORMATION
  Report Type: Report from Study
  Country: US (occurrence: US)
  Receive Date: 20131125
  Receipt Date: 20131125
  Transmission Date: 20140711
  Serious: Yes (Other)
  Sender: FDA-Public Use
  Company Number: US-JNJFOC-20131110739

PATIENT
  Sex: Female

DRUGS (1)
  1. REMICADE [Suspect]
     Indication: COLITIS ULCERATIVE
     Route: 042
     Dates: start: 2013

REACTIONS (6)
  - Depression [Unknown]
  - Headache [Unknown]
  - Crying [Unknown]
  - Pain [Unknown]
  - Fatigue [Unknown]
  - Heart rate increased [Recovered/Resolved]
